FAERS Safety Report 17121606 (Version 1)
Quarter: 2019Q4

REPORT INFORMATION
  Report Type: Spontaneous
  Country: US (occurrence: US)
  Receive Date: 20191205
  Receipt Date: 20191205
  Transmission Date: 20200122
  Serious: Yes (Disabling)
  Sender: FDA-Public Use
  Company Number: None

PATIENT
  Age: 39 Year
  Sex: Female

DRUGS (30)
  1. EPIPEN [Concomitant]
     Active Substance: EPINEPHRINE
  2. LAVELA [Concomitant]
  3. CALCIUM LACTATE [Concomitant]
     Active Substance: CALCIUM LACTATE
  4. FORMULA 303 [Concomitant]
     Active Substance: MAGNESIUM\PASSIFLORA INCARNATA FLOWER\VALERIAN
  5. THYTROPHIN PMG [Concomitant]
  6. OLPRIMA EPA/DHA [Concomitant]
  7. NEUROPLEX [Concomitant]
  8. PROSYNBIOTIC [Concomitant]
  9. CETIRIZINE [Concomitant]
     Active Substance: CETIRIZINE HYDROCHLORIDE
  10. TRIAMCINOLONE [Concomitant]
     Active Substance: TRIAMCINOLONE
  11. CATAPLEX G [Concomitant]
  12. CIRCUPLEX [Concomitant]
  13. EMPHALEX [Concomitant]
  14. BLUE ICE FERMENTED COD LIVER OIL [Concomitant]
  15. CATAPLEX E2 [Concomitant]
  16. ANTRONEX [Concomitant]
  17. PMG [Concomitant]
  18. BENRALIZUMAB. [Suspect]
     Active Substance: BENRALIZUMAB
     Indication: ASTHMA
     Dosage: ?          QUANTITY:1 INJECTION(S);OTHER FREQUENCY:EVERY MONTH;?
     Route: 058
     Dates: start: 20190823, end: 20190926
  19. VNS [Concomitant]
  20. LINZESS [Concomitant]
     Active Substance: LINACLOTIDE
  21. VITAMIN D3 [Concomitant]
     Active Substance: CHOLECALCIFEROL
  22. CATAPLEX B [Concomitant]
  23. NEUROTROPHIN [Concomitant]
  24. CONGAPLEX [Concomitant]
  25. PANCREATROPHIN PMG [Concomitant]
  26. BRIVIACT [Concomitant]
     Active Substance: BRIVARACETAM
  27. LEVETIRACETAM. [Concomitant]
     Active Substance: LEVETIRACETAM
  28. ALBUTEROL. [Concomitant]
     Active Substance: ALBUTEROL
  29. OMEPRAZOLE. [Concomitant]
     Active Substance: OMEPRAZOLE
  30. PSYLLIUM HUSK POWDER [Concomitant]

REACTIONS (1)
  - Paraesthesia [None]

NARRATIVE: CASE EVENT DATE: 20190823
